FAERS Safety Report 6826663-9 (Version None)
Quarter: 2010Q3

REPORT INFORMATION
  Report Type: 
  Country: None (occurrence: None)
  Receive Date: 20100709
  Receipt Date: 20100629
  Transmission Date: 20110219
  Serious: Yes (Hospitalization, Other)
  Sender: FDA-Public Use
  Company Number: US-PFIZER INC-2010051169

PATIENT
  Sex: Female
  Weight: 85.3 kg

DRUGS (1)
  1. SUTENT [Suspect]
     Indication: ADRENAL GLAND CANCER METASTATIC
     Dosage: 50 MG, 1X/DAY, 2 WK ON 1 OFF
     Dates: end: 20100602

REACTIONS (4)
  - AGITATION [None]
  - DIARRHOEA [None]
  - HEADACHE [None]
  - PALPITATIONS [None]
